FAERS Safety Report 23736921 (Version 1)
Quarter: 2024Q2

REPORT INFORMATION
  Report Type: Spontaneous
  Country: CN (occurrence: CN)
  Receive Date: 20240412
  Receipt Date: 20240412
  Transmission Date: 20240716
  Serious: Yes (Other)
  Sender: FDA-Public Use
  Company Number: CN-BEH-2024170497

PATIENT
  Age: 56 Year
  Sex: Female
  Weight: 54 kg

DRUGS (1)
  1. ALBURX [Suspect]
     Active Substance: ALBUMIN HUMAN
     Indication: Hypoproteinaemia
     Dosage: 20 G, OD
     Route: 041
     Dates: start: 20240322, end: 20240322

REACTIONS (8)
  - Tachypnoea [Recovering/Resolving]
  - Cough [Recovering/Resolving]
  - Flushing [Recovering/Resolving]
  - Larynx irritation [Recovering/Resolving]
  - Rash [Recovering/Resolving]
  - Dyspnoea [Unknown]
  - Pruritus [Unknown]
  - Drug hypersensitivity [Unknown]

NARRATIVE: CASE EVENT DATE: 20240322
